FAERS Safety Report 12085960 (Version 1)
Quarter: 2016Q1

REPORT INFORMATION
  Report Type: Spontaneous
  Country: GB (occurrence: GB)
  Receive Date: 20160217
  Receipt Date: 20160217
  Transmission Date: 20160526
  Serious: Yes (Other)
  Sender: FDA-Public Use
  Company Number: PHHY2016GB017985

PATIENT
  Sex: Male

DRUGS (1)
  1. PHENOXYMETHYLPENICILLIN (= PENICILLIN V) [Suspect]
     Active Substance: PENICILLIN V
     Indication: TONSILLITIS
     Route: 065
     Dates: start: 20160126, end: 20160128

REACTIONS (4)
  - Stomatitis [Recovering/Resolving]
  - Mouth swelling [Recovering/Resolving]
  - Mouth haemorrhage [Recovering/Resolving]
  - Product taste abnormal [Unknown]

NARRATIVE: CASE EVENT DATE: 20160128
